FAERS Safety Report 20108083 (Version 1)
Quarter: 2021Q4

REPORT INFORMATION
  Report Type: Spontaneous
  Country: US (occurrence: US)
  Receive Date: 20211124
  Receipt Date: 20211124
  Transmission Date: 20220303
  Serious: Yes (Other)
  Sender: FDA-Public Use
  Company Number: US-COLGATE PALMOLIVE COMPANY-20211102417

PATIENT
  Age: 82 Year
  Sex: Female

DRUGS (1)
  1. COLGATE OPTIC WHITE ADVANCED SPARKLING WHITE [Suspect]
     Active Substance: SODIUM MONOFLUOROPHOSPHATE
     Dosage: UNKNOWN DOSE
     Dates: start: 202110, end: 2021

REACTIONS (4)
  - Anal haemorrhage [Unknown]
  - Vaginal haemorrhage [Unknown]
  - Gastrointestinal injury [Unknown]
  - Accidental exposure to product [Unknown]

NARRATIVE: CASE EVENT DATE: 20211001
